FAERS Safety Report 9556236 (Version 2)
Quarter: 2013Q4

REPORT INFORMATION
  Report Type: Report from Study
  Country: FR (occurrence: FR)
  Receive Date: 20130926
  Receipt Date: 20131231
  Transmission Date: 20140711
  Serious: Yes (Hospitalization)
  Sender: FDA-Public Use
  Company Number: PHHO2013FR012382

PATIENT
  Sex: 0

DRUGS (1)
  1. ACZ885 [Suspect]
     Indication: JUVENILE IDIOPATHIC ARTHRITIS
     Dosage: 2 MG, QMO[KG/MONTH]
     Route: 058
     Dates: start: 20100303

REACTIONS (1)
  - Meningitis viral [Recovered/Resolved]
